FAERS Safety Report 10144268 (Version 1)
Quarter: 2014Q2

REPORT INFORMATION
  Report Type: Spontaneous
  Country: US (occurrence: US)
  Receive Date: 20140430
  Receipt Date: 20140430
  Transmission Date: 20141212
  Serious: Yes (Other)
  Sender: FDA-Public Use
  Company Number: US-ROXANE LABORATORIES, INC.-2014-RO-00667RO

PATIENT
  Age: 60 Year
  Sex: Male

DRUGS (3)
  1. PREDNISONE [Suspect]
     Indication: RHEUMATOID ARTHRITIS
     Dosage: 10 MG
     Route: 065
  2. NAFCILLIN [Suspect]
     Indication: PYOMYOSITIS
     Route: 065
  3. NAFCILLIN [Suspect]
     Indication: STAPHYLOCOCCAL BACTERAEMIA

REACTIONS (4)
  - Pyomyositis [Unknown]
  - Arthritis bacterial [Unknown]
  - Tubulointerstitial nephritis [Unknown]
  - Staphylococcal bacteraemia [Unknown]
